FAERS Safety Report 4498463-9 (Version None)
Quarter: 2004Q4

REPORT INFORMATION
  Report Type: 
  Country: None (occurrence: None)
  Receive Date: 20041105
  Receipt Date: 20041025
  Transmission Date: 20050328
  Serious: Yes (Other)
  Sender: FDA-Public Use
  Company Number: SUSI-2004-00706

PATIENT
  Age: 37 Year
  Sex: Female

DRUGS (1)
  1. PENTASA [Suspect]
     Indication: CROHN'S DISEASE
     Dosage: 3 G, DAILY, ORAL
     Route: 048
     Dates: start: 19980101

REACTIONS (3)
  - ASTHENIA [None]
  - LEUKOPENIA [None]
  - NEUTROPENIA [None]
